FAERS Safety Report 6736291-1 (Version None)
Quarter: 2010Q2

REPORT INFORMATION
  Report Type: 
  Country: None (occurrence: None)
  Receive Date: 20100520
  Receipt Date: 20100520
  Transmission Date: 20101027
  Serious: Yes (Death, Hospitalization)
  Sender: FDA-Public Use
  Company Number: None

PATIENT
  Sex: Male
  Weight: 69 kg

DRUGS (5)
  1. EPIRUBICIN [Suspect]
  2. OXALIPLATIN [Suspect]
  3. FLUOROURACIL [Suspect]
  4. ALTACE [Concomitant]
  5. ZYRTEC [Concomitant]

REACTIONS (7)
  - ADENOCARCINOMA [None]
  - DYSPHAGIA [None]
  - DYSPHONIA [None]
  - MALIGNANT PLEURAL EFFUSION [None]
  - METASTATIC NEOPLASM [None]
  - PNEUMONIA [None]
  - WHITE BLOOD CELL COUNT DECREASED [None]
